FAERS Safety Report 9893958 (Version 1)
Quarter: 2014Q1

REPORT INFORMATION
  Report Type: Spontaneous
  Country: US (occurrence: US)
  Receive Date: 20140213
  Receipt Date: 20140213
  Transmission Date: 20141002
  Serious: No
  Sender: FDA-Public Use
  Company Number: US-BAYER-2014-021877

PATIENT
  Age: 77 Year
  Sex: Female
  Weight: 49.89 kg

DRUGS (3)
  1. ESTRADIOL HEMIHYDRATE (PATCH) [Suspect]
     Dosage: 5 MCG/24HR, CONT
     Route: 062
     Dates: start: 201401
  2. ESCITALOPRAM [Concomitant]
     Indication: DEPRESSION
     Dosage: 10 MG, QD
     Route: 048
     Dates: start: 2000
  3. LEVOTHROID [Concomitant]
     Indication: HYPOTHYROIDISM
     Dosage: UNK

REACTIONS (5)
  - Application site irritation [Not Recovered/Not Resolved]
  - Application site erythema [Not Recovered/Not Resolved]
  - Device material issue [Not Recovered/Not Resolved]
  - Product packaging quantity issue [None]
  - Off label use [None]
